FAERS Safety Report 10522447 (Version 2)
Quarter: 2015Q1

REPORT INFORMATION
  Report Type: Report from Study
  Country: JP (occurrence: JP)
  Receive Date: 20141016
  Receipt Date: 20150127
  Transmission Date: 20150720
  Serious: Yes (Hospitalization)
  Sender: FDA-Public Use
  Company Number: JP-SA-2014SA138978

PATIENT
  Age: 86 Year
  Sex: Male
  Weight: 75 kg

DRUGS (14)
  1. THYROGEN [Suspect]
     Active Substance: THYROTROPIN ALFA
     Indication: THERAPEUTIC PROCEDURE
     Route: 030
     Dates: start: 20140903, end: 20140904
  2. ALCADOL [Concomitant]
     Indication: HYPOCALCAEMIA
     Route: 048
  3. THYRADIN-S [Concomitant]
     Active Substance: LEVOTHYROXINE
     Route: 048
  4. IMIQUIMOD. [Concomitant]
     Active Substance: IMIQUIMOD
     Indication: HAEMORRHOIDS
     Route: 061
  5. NICERGOLINE [Concomitant]
     Active Substance: NICERGOLINE
  6. IODINE (131 I) [Suspect]
     Active Substance: SODIUM IODIDE I-131
     Indication: THERAPEUTIC PROCEDURE
     Route: 065
     Dates: start: 20140905
  7. BEZAFIBRATE [Concomitant]
     Active Substance: BEZAFIBRATE
     Indication: HYPERLIPIDAEMIA
     Route: 048
  8. BLOPRESS [Concomitant]
     Active Substance: CANDESARTAN CILEXETIL
     Indication: HYPERTENSION
     Route: 048
  9. CALCIUM LACTATE [Concomitant]
     Active Substance: CALCIUM LACTATE
     Indication: HYPOCALCAEMIA
     Route: 048
  10. ALLOPURINOL. [Concomitant]
     Active Substance: ALLOPURINOL
     Indication: HYPERURICAEMIA
  11. LYRICA [Concomitant]
     Active Substance: PREGABALIN
     Indication: NEURALGIA
     Route: 048
  12. EBASTEL [Concomitant]
     Active Substance: EBASTINE
     Indication: RHINITIS ALLERGIC
     Route: 048
  13. AVOLVE [Concomitant]
     Active Substance: DUTASTERIDE
     Indication: BENIGN PROSTATIC HYPERPLASIA
     Route: 048
  14. KREMEZIN [Concomitant]
     Active Substance: ACTIVATED CHARCOAL
     Indication: CHRONIC KIDNEY DISEASE

REACTIONS (1)
  - Laryngeal oedema [Recovering/Resolving]

NARRATIVE: CASE EVENT DATE: 20140906
